FAERS Safety Report 7155181-6 (Version None)
Quarter: 2010Q4

REPORT INFORMATION
  Report Type: 
  Country: None (occurrence: None)
  Receive Date: 20101214
  Receipt Date: 20091130
  Transmission Date: 20110411
  Serious: No
  Sender: FDA-Public Use
  Company Number: US-AMGEN-TCS370964

PATIENT

DRUGS (14)
  1. ENBREL [Suspect]
     Indication: PSORIATIC ARTHROPATHY
     Dosage: 50 MG, QWK
     Route: 058
     Dates: start: 20091023
  2. ENBREL [Suspect]
     Indication: PRODUCT USED FOR UNKNOWN INDICATION
  3. IRBESARTAN [Concomitant]
  4. CLOPIDOGREL BISULFATE [Concomitant]
  5. GLIPIZIDE [Concomitant]
  6. MELOXICAM [Concomitant]
  7. ESTRADIOL [Concomitant]
  8. PANTOPRAZOLE SODIUM [Concomitant]
  9. ATORVASTATIN CALCIUM [Concomitant]
  10. INSULIN GLARGINE [Concomitant]
  11. INSULIN LISPRO [Concomitant]
  12. ERGOCALCIFEROL [Concomitant]
  13. MEPERIDINE HYDROCHLORIDE [Concomitant]
  14. CYANOCOBALAMIN [Concomitant]

REACTIONS (2)
  - EYE PAIN [None]
  - HEADACHE [None]
